FAERS Safety Report 9692964 (Version 1)
Quarter: 2013Q4

REPORT INFORMATION
  Report Type: Report from Study
  Country: US (occurrence: US)
  Receive Date: 20131118
  Receipt Date: 20131118
  Transmission Date: 20140711
  Serious: Yes (Hospitalization)
  Sender: FDA-Public Use
  Company Number: US-US-EMD SERONO, INC.-7249461

PATIENT
  Sex: Female

DRUGS (2)
  1. REBIF [Suspect]
     Indication: PRODUCT USED FOR UNKNOWN INDICATION
     Route: 058
     Dates: start: 20130820, end: 20131103
  2. REBIF [Suspect]
     Dosage: PATIENT TOOK HALF OF 22 MCG
     Route: 058
     Dates: start: 20131110

REACTIONS (2)
  - Cystitis [Unknown]
  - Decreased appetite [Recovered/Resolved]
